FAERS Safety Report 13954406 (Version 1)
Quarter: 2017Q3

REPORT INFORMATION
  Report Type: Spontaneous
  Country: CA (occurrence: CA)
  Receive Date: 20170909
  Receipt Date: 20170909
  Transmission Date: 20171128
  Serious: Yes (Disabling)
  Sender: FDA-Public Use
  Company Number: None

PATIENT
  Age: 29 Year
  Sex: Female
  Weight: 63 kg

DRUGS (1)
  1. BOTOX [Suspect]
     Active Substance: ONABOTULINUMTOXINA
     Indication: SKIN WRINKLING
     Dates: start: 20170907, end: 20170907

REACTIONS (10)
  - Lymphadenopathy [None]
  - Malaise [None]
  - Nausea [None]
  - Pyrexia [None]
  - Influenza like illness [None]
  - Headache [None]
  - Muscular weakness [None]
  - Fatigue [None]
  - Anxiety [None]
  - Chills [None]

NARRATIVE: CASE EVENT DATE: 20170907
